FAERS Safety Report 5033136-5 (Version None)
Quarter: 2006Q2

REPORT INFORMATION
  Report Type: 
  Country: None (occurrence: None)
  Receive Date: 20060505
  Receipt Date: 20060207
  Transmission Date: 20061013
  Serious: Yes (Other)
  Sender: FDA-Public Use
  Company Number: PHEH2005US12307

PATIENT
  Age: 77 Year
  Sex: Male
  Weight: 76.2 kg

DRUGS (5)
  1. DIOVAN HCT [Suspect]
     Indication: HYPERTENSION
     Dosage: 160/12.5MG
     Dates: start: 20030801, end: 20050619
  2. ATENOLOL [Concomitant]
  3. PLAVIX [Concomitant]
  4. VYTORIN [Concomitant]
  5. EYE DROPS ALPHAGAN + XANATAR [Concomitant]

REACTIONS (2)
  - BLOOD CREATININE INCREASED [None]
  - BLOOD UREA INCREASED [None]
